FAERS Safety Report 5993509-0 (Version None)
Quarter: 2008Q4

REPORT INFORMATION
  Report Type: 
  Country: None (occurrence: None)
  Receive Date: 20081212
  Receipt Date: 20081202
  Transmission Date: 20090506
  Serious: Yes (Other)
  Sender: FDA-Public Use
  Company Number: US-AMGEN-QUU299533

PATIENT
  Sex: Female
  Weight: 94 kg

DRUGS (3)
  1. ENBREL [Suspect]
     Indication: PSORIASIS
     Route: 058
     Dates: start: 20040101, end: 20080723
  2. ATIVAN [Concomitant]
  3. ASPIRIN [Concomitant]

REACTIONS (2)
  - CHRONIC MYELOID LEUKAEMIA [None]
  - GLYCOSYLATED HAEMOGLOBIN INCREASED [None]
